FAERS Safety Report 7712788-2 (Version None)
Quarter: 2011Q3

REPORT INFORMATION
  Report Type: 
  Country: None (occurrence: None)
  Receive Date: 20110826
  Receipt Date: 20110818
  Transmission Date: 20111222
  Serious: Yes (Life-Threatening, Hospitalization)
  Sender: FDA-Public Use
  Company Number: JP-GLAXOSMITHKLINE-B0604882A

PATIENT
  Sex: Female
  Weight: 41 kg

DRUGS (4)
  1. TYKERB [Suspect]
     Indication: BREAST CANCER
     Dosage: 1250MG PER DAY
     Route: 048
     Dates: start: 20090626, end: 20100318
  2. FAMOTIDINE [Concomitant]
     Route: 065
  3. XELODA [Suspect]
     Indication: BREAST CANCER
     Dosage: 3000MG PER DAY
     Route: 048
     Dates: start: 20090626, end: 20100318
  4. BETAMETHASONE [Suspect]
     Indication: METASTASES TO CENTRAL NERVOUS SYSTEM

REACTIONS (1)
  - PULMONARY EMBOLISM [None]
